FAERS Safety Report 18373400 (Version 1)
Quarter: 2020Q4

REPORT INFORMATION
  Report Type: Spontaneous
  Country: IT (occurrence: IT)
  Receive Date: 20201012
  Receipt Date: 20201012
  Transmission Date: 20210114
  Serious: Yes (Life-Threatening)
  Sender: FDA-Public Use
  Company Number: IT-ALLERGAN-2038462US

PATIENT
  Sex: Male
  Weight: 55 kg

DRUGS (3)
  1. CONTRAMAL [Concomitant]
     Active Substance: TRAMADOL HYDROCHLORIDE
     Indication: PAIN
     Route: 048
     Dates: start: 20200915
  2. RIVOTRIL [Concomitant]
     Active Substance: CLONAZEPAM
     Indication: SEDATION
     Route: 048
     Dates: start: 20200915
  3. DALBAVANCIN HCL UNK [Suspect]
     Active Substance: DALBAVANCIN HYDROCHLORIDE
     Indication: SKIN BACTERIAL INFECTION
     Dosage: 1500 MG, SINGLE
     Route: 041
     Dates: start: 20200924, end: 20200924

REACTIONS (3)
  - Erythema [Recovered/Resolved]
  - Dyspnoea [Recovered/Resolved]
  - Laryngospasm [Recovered/Resolved]

NARRATIVE: CASE EVENT DATE: 20200924
